FAERS Safety Report 15886949 (Version 1)
Quarter: 2019Q1

REPORT INFORMATION
  Report Type: Spontaneous
  Country: US (occurrence: US)
  Receive Date: 20190130
  Receipt Date: 20190130
  Transmission Date: 20190417
  Serious: No
  Sender: FDA-Public Use
  Company Number: US-AUROBINDO-AUR-APL-2018-050550

PATIENT
  Sex: Female
  Weight: 77.1 kg

DRUGS (10)
  1. DULOXETINE DELAYED RELEASE CAPSULES [Suspect]
     Active Substance: DULOXETINE
     Indication: INSOMNIA
  2. GLIPIZIDE. [Concomitant]
     Active Substance: GLIPIZIDE
     Indication: TYPE 2 DIABETES MELLITUS
     Dosage: 1 DOSAGE FORM, TWO TIMES A DAY
     Route: 065
  3. LISINOPRIL. [Concomitant]
     Active Substance: LISINOPRIL
     Indication: PRODUCT USED FOR UNKNOWN INDICATION
     Dosage: 2 DOSAGE FORM, DAILY, AT NIGHT
     Route: 065
  4. DULOXETINE DELAYED RELEASE CAPSULES [Suspect]
     Active Substance: DULOXETINE
     Indication: ANXIETY
     Dosage: 1 DOSAGE FORM, DAILY AT NIGHT TIME
     Route: 048
  5. NORCO [Concomitant]
     Active Substance: ACETAMINOPHEN\HYDROCODONE BITARTRATE
     Indication: FIBROMYALGIA
     Dosage: 1 DOSAGE FORM, 3 TIMES A DAY
     Route: 065
  6. DULOXETINE DELAYED RELEASE CAPSULES [Suspect]
     Active Substance: DULOXETINE
     Indication: DEPRESSION
     Dosage: 1 DOSAGE FORM
     Route: 048
  7. DULOXETINE DELAYED RELEASE CAPSULES [Suspect]
     Active Substance: DULOXETINE
     Indication: FIBROMYALGIA
  8. METFORMIN [Concomitant]
     Active Substance: METFORMIN HYDROCHLORIDE
     Indication: PRODUCT USED FOR UNKNOWN INDICATION
     Dosage: 1 DOSAGE FORM, TWO TIMES A DAY
     Route: 065
  9. VERAPAMIL [Concomitant]
     Active Substance: VERAPAMIL HYDROCHLORIDE
     Indication: HYPERTENSION
     Dosage: 1 DOSAGE FORM, DAILY, AT BED TIME
     Route: 048
  10. ATORVASTATIN [Concomitant]
     Active Substance: ATORVASTATIN
     Indication: PRODUCT USED FOR UNKNOWN INDICATION
     Dosage: 1 DOSAGE FORM, DAILY
     Route: 048

REACTIONS (3)
  - Headache [Not Recovered/Not Resolved]
  - Stress [Not Recovered/Not Resolved]
  - Drug ineffective [Not Recovered/Not Resolved]
